FAERS Safety Report 5418494-1 (Version None)
Quarter: 2007Q3

REPORT INFORMATION
  Report Type: 
  Country: None (occurrence: None)
  Receive Date: 20070817
  Receipt Date: 20070814
  Transmission Date: 20080115
  Serious: No
  Sender: FDA-Public Use
  Company Number: US-BOEHRINGER INGELHEIM PHARMACEUTICALS, INC.-2007-BP-19231BP

PATIENT
  Sex: Female

DRUGS (11)
  1. CATAPRES-TTS-1 [Suspect]
     Indication: HYPERTENSION
     Route: 061
     Dates: start: 20060101
  2. DILANTIN [Concomitant]
     Indication: CONVULSION
  3. DIOVAN [Concomitant]
     Indication: HYPERTENSION
  4. HYDROCHLOROTHIAZIDE [Concomitant]
     Indication: HYPERTENSION
  5. DEMECLOCYCLINE [Concomitant]
     Indication: BLOOD SODIUM
  6. LIPITOR [Concomitant]
     Indication: BLOOD CHOLESTEROL INCREASED
  7. NORVASC [Concomitant]
     Indication: HYPERTENSION
  8. PLAVIX [Concomitant]
     Indication: CEREBROVASCULAR ACCIDENT PROPHYLAXIS
  9. TOPROL-XL [Concomitant]
     Indication: HYPERTENSION
  10. POTASSIUM CHLORIDE [Concomitant]
  11. ACTONEL [Concomitant]
     Indication: OSTEOPOROSIS

REACTIONS (1)
  - APPLICATION SITE ERYTHEMA [None]
